FAERS Safety Report 25121259 (Version 2)
Quarter: 2025Q1

REPORT INFORMATION
  Report Type: Spontaneous
  Country: BG (occurrence: BG)
  Receive Date: 20250326
  Receipt Date: 20250327
  Transmission Date: 20250409
  Serious: Yes (Other)
  Sender: PFIZER
  Company Number: BG-PFIZER INC-202500063599

PATIENT
  Age: 68 Year
  Sex: Female

DRUGS (4)
  1. IBRANCE [Suspect]
     Active Substance: PALBOCICLIB
     Indication: Breast cancer metastatic
     Dates: start: 202311, end: 202402
  2. IBRANCE [Suspect]
     Active Substance: PALBOCICLIB
     Dates: start: 202402
  3. FULVESTRANT [Concomitant]
     Active Substance: FULVESTRANT
     Dates: start: 202311
  4. DENOSUMAB [Concomitant]
     Active Substance: DENOSUMAB
     Dates: start: 202311

REACTIONS (2)
  - Haematotoxicity [Recovered/Resolved]
  - Neutropenia [Recovered/Resolved]

NARRATIVE: CASE EVENT DATE: 20240101
